FAERS Safety Report 5347349-6 (Version None)
Quarter: 2007Q2

REPORT INFORMATION
  Report Type: 
  Country: None (occurrence: None)
  Receive Date: 20070606
  Receipt Date: 20070525
  Transmission Date: 20071010
  Serious: Yes (Hospitalization, Other)
  Sender: FDA-Public Use
  Company Number: GB-JNJFOC-20070506824

PATIENT
  Sex: Female
  Weight: 53 kg

DRUGS (9)
  1. REMICADE [Suspect]
     Indication: RHEUMATOID ARTHRITIS
     Route: 042
  2. METHOTREXATE SODIUM [Concomitant]
  3. CO-DYDRAMOL [Concomitant]
  4. ETORICOXIB [Concomitant]
  5. FERROUS SULFATE TAB [Concomitant]
  6. FOLIC ACID [Concomitant]
  7. HYDROXOCOBALAMIN [Concomitant]
  8. METOCLOPRAMIDE [Concomitant]
  9. ASCORBIC ACID [Concomitant]

REACTIONS (1)
  - SMALL INTESTINE CARCINOMA METASTATIC [None]
